FAERS Safety Report 10498128 (Version 3)
Quarter: 2014Q4

REPORT INFORMATION
  Report Type: Report from Study
  Country: US (occurrence: US)
  Receive Date: 20141006
  Receipt Date: 20141103
  Transmission Date: 20150528
  Serious: No
  Sender: FDA-Public Use
  Company Number: US-PURDUE-USA-2014-0117938

PATIENT
  Age: 72 Year
  Sex: Male
  Weight: 107.94 kg

DRUGS (2)
  1. OXYCONTIN [Suspect]
     Active Substance: OXYCODONE HYDROCHLORIDE
     Indication: ARTHRITIS
     Dosage: 30 MG, BID
     Route: 048
     Dates: start: 20140904
  2. OXYCONTIN [Suspect]
     Active Substance: OXYCODONE HYDROCHLORIDE
     Dosage: UNK
     Route: 048
     Dates: start: 2013

REACTIONS (1)
  - Cervical radiculopathy [Unknown]

NARRATIVE: CASE EVENT DATE: 20140930
